FAERS Safety Report 10466486 (Version 3)
Quarter: 2014Q4

REPORT INFORMATION
  Report Type: Spontaneous
  Country: JP (occurrence: JP)
  Receive Date: 20140922
  Receipt Date: 20141014
  Transmission Date: 20150528
  Serious: Yes (Death, Other)
  Sender: FDA-Public Use
  Company Number: PHHY2014JP121456

PATIENT
  Age: 25 Year

DRUGS (1)
  1. NEORAL [Suspect]
     Active Substance: CYCLOSPORINE
     Indication: MYASTHENIA GRAVIS
     Route: 048

REACTIONS (7)
  - Blood immunoglobulin G decreased [Unknown]
  - Death [Fatal]
  - Renal cell carcinoma [Unknown]
  - Dermatitis exfoliative [Unknown]
  - Thymoma [Unknown]
  - Infection [Unknown]
  - Large intestine perforation [Unknown]
